FAERS Safety Report 15981967 (Version 1)
Quarter: 2019Q1

REPORT INFORMATION
  Report Type: Spontaneous
  Country: US (occurrence: US)
  Receive Date: 20190219
  Receipt Date: 20190219
  Transmission Date: 20190418
  Serious: No
  Sender: FDA-Public Use
  Company Number: US-ELI_LILLY_AND_COMPANY-US201902006619

PATIENT
  Age: 48 Year
  Sex: Male

DRUGS (1)
  1. BASAGLAR [Suspect]
     Active Substance: INSULIN GLARGINE
     Indication: TYPE 2 DIABETES MELLITUS
     Dosage: 40 U, EACH EVENING
     Route: 058
     Dates: start: 201811

REACTIONS (4)
  - Abdominal discomfort [Unknown]
  - Asthenia [Unknown]
  - Malaise [Unknown]
  - Head discomfort [Unknown]

NARRATIVE: CASE EVENT DATE: 201901
